FAERS Safety Report 5889983-0 (Version None)
Quarter: 2008Q3

REPORT INFORMATION
  Report Type: 
  Country: None (occurrence: None)
  Receive Date: 20080919
  Receipt Date: 20080912
  Transmission Date: 20090109
  Serious: Yes (Hospitalization)
  Sender: FDA-Public Use
  Company Number: DK-PFIZER INC-2005118897

PATIENT
  Age: 66 Year
  Sex: Male

DRUGS (4)
  1. DIFLUCAN [Suspect]
     Indication: ILL-DEFINED DISORDER
     Route: 048
     Dates: start: 20040807, end: 20040811
  2. NAXOGIN [Interacting]
     Indication: GLOTTIS CARCINOMA
     Route: 048
     Dates: start: 20040716, end: 20040823
  3. MARCUMAR [Interacting]
     Indication: ILL-DEFINED DISORDER
     Route: 048
  4. ACETAMINOPHEN [Concomitant]
     Route: 065

REACTIONS (4)
  - DRUG INTERACTION [None]
  - HAEMATURIA [None]
  - HAEMOPTYSIS [None]
  - INTERNATIONAL NORMALISED RATIO INCREASED [None]
